FAERS Safety Report 7770652-7 (Version None)
Quarter: 2011Q3

REPORT INFORMATION
  Report Type: 
  Country: None (occurrence: None)
  Receive Date: 20110922
  Receipt Date: 20110921
  Transmission Date: 20111222
  Serious: Yes (Other)
  Sender: FDA-Public Use
  Company Number: PHHY2011FR72229

PATIENT
  Sex: Female
  Weight: 65 kg

DRUGS (1)
  1. ZOLEDRONOC ACID [Suspect]
     Indication: OSTEOPOROSIS
     Dosage: UNK UKN, UNK
     Route: 042
     Dates: start: 20110607

REACTIONS (11)
  - WALKING DISABILITY [None]
  - BREAST PAIN [None]
  - MUSCULOSKELETAL STIFFNESS [None]
  - HEADACHE [None]
  - ARTHRALGIA [None]
  - RESPIRATORY TRACT CONGESTION [None]
  - VOMITING [None]
  - BONE PAIN [None]
  - PAIN [None]
  - JOINT SWELLING [None]
  - PAIN IN EXTREMITY [None]
